FAERS Safety Report 21411182 (Version 4)
Quarter: 2023Q1

REPORT INFORMATION
  Report Type: Spontaneous
  Country: US (occurrence: US)
  Receive Date: 20221005
  Receipt Date: 20230111
  Transmission Date: 20230417
  Serious: No
  Sender: FDA-Public Use
  Company Number: US-PFIZER INC-202201189091

PATIENT
  Age: 67 Year
  Sex: Male
  Weight: 106.58 kg

DRUGS (2)
  1. GENOTROPIN [Suspect]
     Active Substance: SOMATROPIN
     Indication: Growth hormone deficiency
     Dosage: 0.4 MG, 1X/DAY (EVERY MORNING BY INJECTION)
     Dates: start: 20220907
  2. GENOTROPIN [Suspect]
     Active Substance: SOMATROPIN
     Dosage: UNK [0.6/DAY]
     Dates: start: 202209

REACTIONS (5)
  - COVID-19 [Not Recovered/Not Resolved]
  - Device leakage [Unknown]
  - Device defective [Unknown]
  - Wrong technique in device usage process [Unknown]
  - Drug dose omission by device [Unknown]

NARRATIVE: CASE EVENT DATE: 20220901
